FAERS Safety Report 8659449 (Version 2)
Quarter: 2013Q4

REPORT INFORMATION
  Report Type: Report from Study
  Country: ES (occurrence: ES)
  Receive Date: 20120711
  Receipt Date: 20131206
  Transmission Date: 20140711
  Serious: Yes (Disabling)
  Sender: FDA-Public Use
  Company Number: ES-MPIJNJ-2011-00478

PATIENT
  Sex: 0

DRUGS (4)
  1. VELCADE [Suspect]
     Indication: PLASMA CELL MYELOMA
     Dosage: 1.3 MG/M2, UNK
     Route: 042
     Dates: start: 20070605, end: 20071102
  2. INTERFERON ALFA-2B [Suspect]
     Indication: PLASMA CELL MYELOMA
     Dosage: 1.5 UNK, UNK
     Route: 058
     Dates: start: 20080428, end: 20110202
  3. THALIDOMIDE [Suspect]
     Indication: PLASMA CELL MYELOMA
     Dosage: 100 MG, UNK
     Route: 048
     Dates: start: 20070605, end: 20071119
  4. INFLUENZA VACCINE [Suspect]
     Indication: PROPHYLAXIS

REACTIONS (1)
  - Myopathy [Not Recovered/Not Resolved]
